FAERS Safety Report 10211699 (Version 1)
Quarter: 2014Q2

REPORT INFORMATION
  Report Type: Spontaneous
  Country: GB (occurrence: None)
  Receive Date: 20140528
  Receipt Date: 20140528
  Transmission Date: 20141212
  Serious: Yes (Disabling)
  Sender: FDA-Public Use
  Company Number: AUR-APL-2014-06045

PATIENT
  Age: 40 Year
  Sex: Female
  Weight: 67 kg

DRUGS (11)
  1. TERBINAFINE [Suspect]
     Indication: ONYCHOMYCOSIS
     Route: 048
     Dates: start: 20140415, end: 20140429
  2. BETAMETHASONE VALERATE [Concomitant]
  3. CAPASAL [Concomitant]
  4. CINCHOCAINE [Concomitant]
  5. CITALOPRAM [Concomitant]
  6. DERMOL [Concomitant]
  7. EPADERM [Concomitant]
  8. HAELAN (FLUDROXYCORTIDE) [Concomitant]
  9. LACTULOSE [Concomitant]
  10. OMEPRAZOLE [Concomitant]
  11. PREDNISOLONE [Concomitant]

REACTIONS (1)
  - Vasculitic rash [None]
